FAERS Safety Report 5458460-3 (Version None)
Quarter: 2007Q3

REPORT INFORMATION
  Report Type: 
  Country: None (occurrence: None)
  Receive Date: 20070919
  Receipt Date: 20070404
  Transmission Date: 20080115
  Serious: No
  Sender: FDA-Public Use
  Company Number: US-ASTRAZENECA-2007UW06681

PATIENT
  Sex: Female

DRUGS (2)
  1. SEROQUEL [Suspect]
     Indication: SCHIZOPHRENIA
     Route: 048
  2. DEPAKOTE [Concomitant]

REACTIONS (9)
  - DYSPHAGIA [None]
  - MUSCLE RIGIDITY [None]
  - MUSCLE SPASMS [None]
  - MYALGIA [None]
  - MYOTONIA CONGENITA [None]
  - NASAL CONGESTION [None]
  - PHARYNGITIS [None]
  - TETANY [None]
  - VITAMIN D DEFICIENCY [None]
